FAERS Safety Report 16543456 (Version 1)
Quarter: 2019Q3

REPORT INFORMATION
  Report Type: Spontaneous
  Country: JP (occurrence: JP)
  Receive Date: 20190709
  Receipt Date: 20190709
  Transmission Date: 20191004
  Serious: Yes (Other)
  Sender: FDA-Public Use
  Company Number: JP-LUPIN PHARMACEUTICALS INC.-2019-04274

PATIENT
  Age: 47 Year
  Sex: Female

DRUGS (10)
  1. DONEPEZIL. [Suspect]
     Active Substance: DONEPEZIL
     Indication: ROSS SYNDROME
     Dosage: 10 MILLIGRAM, QD
     Route: 065
  2. MIRTAZAPINE. [Concomitant]
     Active Substance: MIRTAZAPINE
     Indication: MAJOR DEPRESSION
     Dosage: UNK, MAXIMAL THERAPEUTIC DOSES
     Route: 065
  3. SOLIFENACIN [Concomitant]
     Active Substance: SOLIFENACIN
     Indication: HYPERTONIC BLADDER
     Dosage: UNK
     Route: 065
  4. DULOXETINE. [Concomitant]
     Active Substance: DULOXETINE
     Indication: MAJOR DEPRESSION
     Dosage: UNK, MAXIMAL THERAPEUTIC DOSES
     Route: 065
  5. DONEPEZIL. [Suspect]
     Active Substance: DONEPEZIL
     Dosage: UNK
     Route: 065
  6. ESCITALOPRAM [Concomitant]
     Active Substance: ESCITALOPRAM OXALATE
     Indication: MAJOR DEPRESSION
     Dosage: UNK, MAXIMAL THERAPEUTIC DOSES
     Route: 065
  7. NORTRIPTYLINE [Concomitant]
     Active Substance: NORTRIPTYLINE
     Indication: MAJOR DEPRESSION
     Dosage: UNK, MAXIMAL THERAPEUTIC DOSES
     Route: 065
  8. IMIPRAMINE [Concomitant]
     Active Substance: IMIPRAMINE
     Indication: MAJOR DEPRESSION
     Dosage: UNK, MAXIMAL THERAPEUTIC DOSES
     Route: 065
  9. BIPERIDEN [Concomitant]
     Active Substance: BIPERIDEN
     Indication: RAPID EYE MOVEMENT SLEEP BEHAVIOUR DISORDER
     Dosage: UNK
     Route: 065
  10. CLOMIPRAMINE [Concomitant]
     Active Substance: CLOMIPRAMINE
     Indication: MAJOR DEPRESSION
     Dosage: UNK, MAXIMAL THERAPEUTIC DOSES
     Route: 065

REACTIONS (1)
  - Hypotonia [Recovered/Resolved]
